FAERS Safety Report 5677246-8 (Version None)
Quarter: 2008Q1

REPORT INFORMATION
  Report Type: 
  Country: None (occurrence: None)
  Receive Date: 20080321
  Receipt Date: 20080321
  Transmission Date: 20080703
  Serious: Yes (Other)
  Sender: FDA-Public Use
  Company Number: None

PATIENT
  Sex: Male

DRUGS (9)
  1. REVLIMID [Suspect]
     Indication: MULTIPLE MYELOMA
     Dosage: 25MG DAILY 21D/28D PO
     Route: 048
  2. DEXAMETHASONE [Suspect]
     Indication: MULTIPLE MYELOMA
     Dosage: 40MG WEEKLY PO
     Route: 048
  3. LACTULOSE [Concomitant]
  4. MORPHINE [Concomitant]
  5. METHADON HCL TAB [Concomitant]
  6. HYDROMORPHONE HCL [Concomitant]
  7. FELODIPINE [Concomitant]
  8. OMEPRAZOLE [Concomitant]
  9. TEMAZEPAM [Concomitant]

REACTIONS (1)
  - THROMBOCYTOPENIA [None]
